FAERS Safety Report 9557755 (Version 2)
Quarter: 2013Q4

REPORT INFORMATION
  Report Type: Spontaneous
  Country: CA (occurrence: None)
  Receive Date: 20130916
  Receipt Date: 20131009
  Transmission Date: 20140711
  Serious: Yes (Hospitalization)
  Sender: FDA-Public Use
  Company Number: 2013037968

PATIENT
  Age: 53 Year
  Sex: Female

DRUGS (3)
  1. PRIVIGEN (IMMUNE GLOBULIN INTRAVENOUS (HUMAN) 10% LIQUID) [Suspect]
     Indication: IMMUNE THROMBOCYTOPENIC PURPURA
     Dosage: 160 G, EXPIRY DATE;  OCT 2015; 160 GM TOTAL OVER 2 DAYS AT MAX RATE OF 96 ML/MIN, INTRAVENOUS (NOT OTHERWISE SPECIFIED)
     Route: 042
     Dates: start: 20130825, end: 20130826
  2. METFORMIN (METFORMIN) [Concomitant]
  3. RAMIPRIL (RAMIPRIL) [Concomitant]

REACTIONS (7)
  - Pulmonary embolism [None]
  - Haemolysis [None]
  - Chest pain [None]
  - Dyspnoea [None]
  - Hyperhidrosis [None]
  - Anti-erythrocyte antibody [None]
  - Autoimmune haemolytic anaemia [None]
